FAERS Safety Report 7113860-0 (Version None)
Quarter: 2010Q4

REPORT INFORMATION
  Report Type: 
  Country: None (occurrence: None)
  Receive Date: 20101119
  Receipt Date: 20101110
  Transmission Date: 20110411
  Serious: Yes (Hospitalization)
  Sender: FDA-Public Use
  Company Number: IT-CELGENEUS-083-C5013-10111405

PATIENT
  Sex: Female
  Weight: 70 kg

DRUGS (9)
  1. CC-5013 [Suspect]
     Indication: MULTIPLE MYELOMA
     Route: 048
     Dates: start: 20101104, end: 20101109
  2. DEXAMETHASONE [Suspect]
     Indication: MULTIPLE MYELOMA
     Route: 065
     Dates: start: 20101104, end: 20101109
  3. BACTRIM [Concomitant]
     Route: 048
     Dates: start: 20101104
  4. LANZOPRAZOLE [Concomitant]
     Indication: PROPHYLAXIS
     Route: 048
     Dates: start: 20101025, end: 20101109
  5. ZYLORIC [Concomitant]
     Indication: PROPHYLAXIS
     Route: 048
     Dates: start: 20101104
  6. CARDIOASPIRINE [Concomitant]
     Indication: THROMBOSIS PROPHYLAXIS
     Route: 048
     Dates: start: 20101104
  7. EUTIROX [Concomitant]
     Indication: THYROIDITIS
     Route: 048
     Dates: start: 19950101
  8. RANIDIL [Concomitant]
     Indication: PROPHYLAXIS
     Route: 051
     Dates: start: 20101110
  9. LASIX [Concomitant]
     Indication: OLIGURIA
     Route: 051
     Dates: start: 20101110

REACTIONS (6)
  - BRONCHOPNEUMONIA [None]
  - COMA [None]
  - CONFUSIONAL STATE [None]
  - DEHYDRATION [None]
  - OLIGURIA [None]
  - RESPIRATORY FAILURE [None]
